FAERS Safety Report 12565203 (Version 1)
Quarter: 2016Q3

REPORT INFORMATION
  Report Type: Spontaneous
  Country: US (occurrence: US)
  Receive Date: 20160718
  Receipt Date: 20160718
  Transmission Date: 20161109
  Serious: No
  Sender: FDA-Public Use
  Company Number: US-PFIZER INC-2016342499

PATIENT
  Sex: Female

DRUGS (12)
  1. ERYTHROMYCIN. [Suspect]
     Active Substance: ERYTHROMYCIN
     Dosage: UNK
  2. DONNATAL [Suspect]
     Active Substance: ATROPINE SULFATE\HYOSCYAMINE SULFATE\PHENOBARBITAL\SCOPOLAMINE HYDROBROMIDE
     Dosage: UNK
  3. PENTOBARBITAL. [Suspect]
     Active Substance: PENTOBARBITAL
     Dosage: UNK
  4. DARVOCET [Suspect]
     Active Substance: ACETAMINOPHEN\PROPOXYPHENE HYDROCHLORIDE
     Dosage: UNK
  5. MACRODANTIN [Suspect]
     Active Substance: NITROFURANTOIN
     Dosage: UNK
  6. ZOMAX [Suspect]
     Active Substance: ZOMEPIRAC SODIUM
     Dosage: UNK
  7. GANTRISIN [Suspect]
     Active Substance: SULFISOXAZOLE ACETYL
     Dosage: UNK
  8. TALWIN [Suspect]
     Active Substance: PENTAZOCINE LACTATE
     Dosage: UNK
  9. INDOCIN [Suspect]
     Active Substance: INDOMETHACIN\INDOMETHACIN SODIUM
     Dosage: UNK
  10. LIBRAX [Suspect]
     Active Substance: CHLORDIAZEPOXIDE HYDROCHLORIDE\CLIDINIUM BROMIDE
     Dosage: UNK
  11. FELDENE [Suspect]
     Active Substance: PIROXICAM
     Dosage: UNK
  12. CITRATE OF MAGNESIUM [Suspect]
     Active Substance: MAGNESIUM CITRATE
     Dosage: UNK

REACTIONS (1)
  - Drug hypersensitivity [Unknown]
